FAERS Safety Report 5135580-4 (Version None)
Quarter: 2006Q4

REPORT INFORMATION
  Report Type: 
  Country: None (occurrence: None)
  Receive Date: 20061026
  Receipt Date: 20061018
  Transmission Date: 20070319
  Serious: Yes (Hospitalization, Other)
  Sender: FDA-Public Use
  Company Number: US-AMGEN-STX197313

PATIENT
  Sex: Female

DRUGS (1)
  1. ENBREL [Suspect]
     Indication: RHEUMATOID ARTHRITIS
     Route: 058
     Dates: start: 20010125

REACTIONS (5)
  - ASTHENOPIA [None]
  - CATARACT [None]
  - DEMYELINATION [None]
  - GALLBLADDER OPERATION [None]
  - VISUAL ACUITY REDUCED [None]
